FAERS Safety Report 19574190 (Version 1)
Quarter: 2021Q3

REPORT INFORMATION
  Report Type: Report from Study
  Country: CN (occurrence: CN)
  Receive Date: 20210719
  Receipt Date: 20210719
  Transmission Date: 20211014
  Serious: Yes (Other)
  Sender: FDA-Public Use
  Company Number: CN-SUN PHARMACEUTICAL INDUSTRIES LTD-2021R1-304331

PATIENT
  Age: 40 Year
  Sex: Female

DRUGS (1)
  1. LIPOSOMAL DOXORUBICIN [Suspect]
     Active Substance: DOXORUBICIN HYDROCHLORIDE
     Indication: CHEMOTHERAPY
     Dosage: 60 MILLIGRAM , UNK (4 CYCLES)
     Route: 042

REACTIONS (2)
  - Vomiting [Unknown]
  - Therapy partial responder [Unknown]
